FAERS Safety Report 8403396-9 (Version None)
Quarter: 2012Q2

REPORT INFORMATION
  Report Type: 
  Country: None (occurrence: None)
  Receive Date: 20120323
  Receipt Date: 20110428
  Transmission Date: 20120825
  Serious: Yes (Hospitalization)
  Sender: FDA-Public Use
  Company Number: 163-21880-11043806

PATIENT
  Age: 67 Year
  Sex: Male
  Weight: 108.8633 kg

DRUGS (13)
  1. VELCADE [Concomitant]
  2. REVLIMID [Suspect]
     Indication: MULTIPLE MYELOMA
     Dosage: 25 MG, QDAY X 14 D W//7D OFF, PO
     Route: 048
     Dates: start: 20110405
  3. AVODART [Concomitant]
  4. ACYCLOVIR [Concomitant]
  5. ASPIRIN [Concomitant]
  6. ZOLOFT [Concomitant]
  7. PERCOCET [Concomitant]
  8. TERAZOSIN HCL [Concomitant]
  9. ATENOLOL [Concomitant]
  10. SYNTHROID [Concomitant]
  11. PRILOSEC [Concomitant]
  12. LIPITOR [Concomitant]
  13. DECADRON [Concomitant]

REACTIONS (1)
  - ANAEMIA [None]
